FAERS Safety Report 21403281 (Version 3)
Quarter: 2023Q2

REPORT INFORMATION
  Report Type: Spontaneous
  Country: CN (occurrence: CN)
  Receive Date: 20221003
  Receipt Date: 20230601
  Transmission Date: 20230722
  Serious: Yes (Hospitalization, Other)
  Sender: FDA-Public Use
  Company Number: CN-MLMSERVICE-20220801-3710254-1

PATIENT
  Age: 31 Year
  Sex: Female
  Weight: 52 kg

DRUGS (20)
  1. LEVOFLOXACIN [Suspect]
     Active Substance: LEVOFLOXACIN
     Indication: Tuberculosis
     Dosage: UNK
  2. ISONIAZID [Suspect]
     Active Substance: ISONIAZID
     Indication: Tuberculosis
     Dosage: UNK
  3. RIFAMPIN [Suspect]
     Active Substance: RIFAMPIN
     Indication: Tuberculosis
     Dosage: UNK
  4. PYRAZINAMIDE [Suspect]
     Active Substance: PYRAZINAMIDE
     Indication: Tuberculosis
     Dosage: UNK
  5. ETHAMBUTOL [Suspect]
     Active Substance: ETHAMBUTOL HYDROCHLORIDE
     Indication: Tuberculosis
     Dosage: UNK
  6. DEXAMETHASONE [Suspect]
     Active Substance: DEXAMETHASONE
     Indication: Tuberculosis
     Dosage: UNK
  7. HEPARIN [Suspect]
     Active Substance: HEPARIN SODIUM
     Indication: Anticoagulant therapy
     Dosage: 12500 U (AT THE CANNULATION TIME)
     Route: 040
  8. HEPARIN [Suspect]
     Active Substance: HEPARIN SODIUM
     Dosage: 10 UNITS/KG/H (CONTINUOUS INFUSION)
     Route: 042
  9. HEPARIN [Suspect]
     Active Substance: HEPARIN SODIUM
     Dosage: UNK
  10. CEFTRIAXONE [Suspect]
     Active Substance: CEFTRIAXONE
     Indication: Evidence based treatment
     Dosage: UNK
  11. AMIKACIN [Suspect]
     Active Substance: AMIKACIN
     Indication: Tuberculosis
     Dosage: UNK
  12. LINEZOLID [Suspect]
     Active Substance: LINEZOLID
     Indication: Tuberculosis
     Dosage: UNK
  13. MEROPENEM [Suspect]
     Active Substance: MEROPENEM
     Indication: Antibiotic prophylaxis
     Dosage: UNK
  14. CYCLOSERINE [Suspect]
     Active Substance: CYCLOSERINE
     Indication: Tuberculosis
     Dosage: UNK
  15. TIGECYCLINE [Suspect]
     Active Substance: TIGECYCLINE
     Indication: Klebsiella infection
     Dosage: UNK
  16. AVIBACTAM SODIUM\CEFTAZIDIME [Suspect]
     Active Substance: AVIBACTAM SODIUM\CEFTAZIDIME
     Indication: Klebsiella infection
     Dosage: 2.5 G, Q8H
  17. NOREPINEPHRINE [Suspect]
     Active Substance: NOREPINEPHRINE
     Dosage: 1.0 MG/KG/MIN (CONTINUOUS PUMPING)
     Route: 042
  18. ARGATROBAN [Suspect]
     Active Substance: ARGATROBAN
     Indication: Anticoagulant therapy
     Dosage: 0.06 UG/KG/MIN (INFUSION)
     Route: 042
  19. ARGATROBAN [Suspect]
     Active Substance: ARGATROBAN
     Dosage: INFUSION VARIED FROM 0.9 TO 1.2 UG/KG/MIN
     Route: 042
  20. UNSPECIFIED INGREDIENT [Suspect]
     Active Substance: UNSPECIFIED INGREDIENT
     Indication: Hypercoagulation
     Dosage: UNK

REACTIONS (10)
  - Demyelination [Unknown]
  - White matter lesion [Unknown]
  - Muscle twitching [Recovered/Resolved]
  - Altered state of consciousness [Recovered/Resolved]
  - Pneumonia klebsiella [Recovering/Resolving]
  - Pyrexia [Recovering/Resolving]
  - Heparin-induced thrombocytopenia [Recovered/Resolved]
  - Liver injury [Recovering/Resolving]
  - Rash [Unknown]
  - Exposure during pregnancy [Unknown]
